FAERS Safety Report 5781890-7 (Version None)
Quarter: 2008Q2

REPORT INFORMATION
  Report Type: 
  Country: None (occurrence: None)
  Receive Date: 20080623
  Receipt Date: 20080616
  Transmission Date: 20081010
  Serious: Yes (Disabling)
  Sender: FDA-Public Use
  Company Number: A0730203A

PATIENT
  Age: 64 Year
  Sex: Female

DRUGS (4)
  1. PAXIL [Suspect]
     Indication: PANIC DISORDER
     Dosage: 20MG PER DAY
     Route: 048
     Dates: start: 20020901
  2. PREMARIN [Concomitant]
     Indication: DRUG USE FOR UNKNOWN INDICATION
  3. PROVERA [Concomitant]
     Indication: DRUG USE FOR UNKNOWN INDICATION
  4. XANAX [Concomitant]
     Indication: DRUG USE FOR UNKNOWN INDICATION

REACTIONS (4)
  - AGITATION [None]
  - DRUG INEFFECTIVE [None]
  - PANIC ATTACK [None]
  - PHARMACEUTICAL PRODUCT COMPLAINT [None]
